FAERS Safety Report 12633176 (Version 2)
Quarter: 2016Q3

REPORT INFORMATION
  Report Type: Spontaneous
  Country: US (occurrence: US)
  Receive Date: 20160808
  Receipt Date: 20160808
  Transmission Date: 20161109
  Serious: No
  Sender: FDA-Public Use
  Company Number: US-BEH-2016058730

PATIENT
  Sex: Female
  Weight: 81 kg

DRUGS (21)
  1. SAVELLA [Concomitant]
     Active Substance: MILNACIPRAN HYDROCHLORIDE
  2. NEXIUM [Concomitant]
     Active Substance: ESOMEPRAZOLE MAGNESIUM
  3. LIDOCAINE/PRILOCAINE [Concomitant]
     Active Substance: LIDOCAINE\PRILOCAINE
  4. ALLEGRA [Concomitant]
     Active Substance: FEXOFENADINE HYDROCHLORIDE
  5. VERAMYST [Concomitant]
     Active Substance: FLUTICASONE FUROATE
  6. ACETAMINOPHEN. [Concomitant]
     Active Substance: ACETAMINOPHEN
  7. DOXYCYCLINE. [Concomitant]
     Active Substance: DOXYCYCLINE
  8. CALTRATE +D [Concomitant]
  9. KARIVA [Concomitant]
     Active Substance: DESOGESTREL\ETHINYL ESTRADIOL
  10. DIPHENHYDRAMINE. [Concomitant]
     Active Substance: DIPHENHYDRAMINE
  11. ATENOLOL. [Concomitant]
     Active Substance: ATENOLOL
  12. EPIPEN [Concomitant]
     Active Substance: EPINEPHRINE
  13. ENALAPRIL [Concomitant]
     Active Substance: ENALAPRIL
  14. PRIMIDONE. [Concomitant]
     Active Substance: PRIMIDONE
  15. VITAMIN D [Concomitant]
     Active Substance: CHOLECALCIFEROL
  16. DONNATAL [Concomitant]
     Active Substance: ATROPINE SULFATE\HYOSCYAMINE SULFATE\PHENOBARBITAL\SCOPOLAMINE HYDROBROMIDE
  17. HYOSCYAMINE. [Concomitant]
     Active Substance: HYOSCYAMINE
  18. ONE-A-DAY WOMEN^S [Concomitant]
     Active Substance: VITAMINS
  19. HIZENTRA [Suspect]
     Active Substance: HUMAN IMMUNOGLOBULIN G
     Indication: HYPOGAMMAGLOBULINAEMIA
     Route: 058
  20. VALTREX [Concomitant]
     Active Substance: VALACYCLOVIR HYDROCHLORIDE
  21. MOTRIN [Concomitant]
     Active Substance: IBUPROFEN

REACTIONS (1)
  - Infection [Unknown]
